FAERS Safety Report 9351111 (Version 2)
Quarter: 2013Q4

REPORT INFORMATION
  Report Type: Spontaneous
  Country: US (occurrence: US)
  Receive Date: 20130617
  Receipt Date: 20131205
  Transmission Date: 20140711
  Serious: Yes (Hospitalization)
  Sender: FDA-Public Use
  Company Number: US-BAYER-2013-072763

PATIENT
  Age: 30 Year
  Sex: Female
  Weight: 70.3 kg

DRUGS (5)
  1. MIRENA [Suspect]
     Indication: CONTRACEPTION
     Dosage: 20 MCG/24HR, CONT
     Route: 015
     Dates: start: 200507, end: 2007
  2. LEVOXYL [Concomitant]
     Dosage: 125 MCG, UNK
     Dates: start: 2002
  3. ZOLOFT [Concomitant]
     Dosage: 50 MG, DAILY
  4. IBUPROFEN [Concomitant]
     Indication: PELVIC PAIN
     Dosage: 800 MG, AS NEEDED
  5. ALBUTEROL [Concomitant]
     Dosage: UNK

REACTIONS (5)
  - Injury [None]
  - Pain [None]
  - Abortion spontaneous [None]
  - Device misuse [None]
  - Menorrhagia [None]
